FAERS Safety Report 10926124 (Version 1)
Quarter: 2015Q1

REPORT INFORMATION
  Report Type: Spontaneous
  Country: BR (occurrence: BR)
  Receive Date: 20150318
  Receipt Date: 20150318
  Transmission Date: 20150721
  Serious: Yes (Hospitalization)
  Sender: FDA-Public Use
  Company Number: BR-009507513-1503BRA004700

PATIENT
  Age: 24 Year
  Sex: Female
  Weight: 50 kg

DRUGS (2)
  1. NUVARING [Suspect]
     Active Substance: ETHINYL ESTRADIOL\ETONOGESTREL
     Indication: CONTRACEPTION
     Dosage: 1 RING, THREE WEEKS IN SITU WITH ONE WEEK RING-FREE PERIOD
     Route: 067
     Dates: start: 2014, end: 201404
  2. NUVARING [Suspect]
     Active Substance: ETHINYL ESTRADIOL\ETONOGESTREL
     Dosage: 1 RING, THREE WEEKS IN SITU WITH ONE WEEK RING-FREE PERIOD
     Route: 067
     Dates: start: 201412

REACTIONS (3)
  - Libido decreased [Not Recovered/Not Resolved]
  - Nasal septum deviation [Recovered/Resolved]
  - Abdominal distension [Not Recovered/Not Resolved]

NARRATIVE: CASE EVENT DATE: 20141023
